FAERS Safety Report 12844809 (Version 3)
Quarter: 2016Q4

REPORT INFORMATION
  Report Type: Report from Study
  Country: US (occurrence: US)
  Receive Date: 20161013
  Receipt Date: 20161219
  Transmission Date: 20170207
  Serious: Yes (Other)
  Sender: FDA-Public Use
  Company Number: US-BAYER-2016-112524

PATIENT
  Sex: Male
  Weight: 104.31 kg

DRUGS (6)
  1. ADEMPAS [Suspect]
     Active Substance: RIOCIGUAT
     Indication: PULMONARY HYPERTENSION
     Dosage: 0.5 MG, TID
     Route: 048
  2. ADEMPAS [Suspect]
     Active Substance: RIOCIGUAT
     Indication: PULMONARY HYPERTENSION
     Dosage: 2.5 MG, BID
     Route: 048
  3. ADEMPAS [Suspect]
     Active Substance: RIOCIGUAT
     Indication: PULMONARY HYPERTENSION
     Dosage: 1 MG, TID
  4. ADEMPAS [Suspect]
     Active Substance: RIOCIGUAT
     Indication: PULMONARY HYPERTENSION
     Dosage: 2.5 MG, TID
     Route: 048
  5. ADEMPAS [Suspect]
     Active Substance: RIOCIGUAT
     Indication: PULMONARY HYPERTENSION
     Dosage: 2 MG, TID
     Route: 048
  6. ADEMPAS [Suspect]
     Active Substance: RIOCIGUAT
     Indication: PULMONARY HYPERTENSION
     Dosage: UNK
     Dates: start: 20160518

REACTIONS (22)
  - Dyspnoea [None]
  - Asthenia [Not Recovered/Not Resolved]
  - Peripheral swelling [None]
  - Dizziness [None]
  - Dysstasia [Not Recovered/Not Resolved]
  - Gait disturbance [Unknown]
  - Eye disorder [None]
  - Productive cough [None]
  - Arthralgia [Unknown]
  - Cough [None]
  - Dysgeusia [Unknown]
  - Flatulence [Unknown]
  - Headache [Unknown]
  - Abdominal distension [None]
  - Upper-airway cough syndrome [None]
  - Eructation [Unknown]
  - Decreased appetite [None]
  - Myalgia [Unknown]
  - Abdominal discomfort [Unknown]
  - Pollakiuria [None]
  - Feeling abnormal [Unknown]
  - Adverse drug reaction [Unknown]
